FAERS Safety Report 5883407-5 (Version None)
Quarter: 2008Q3

REPORT INFORMATION
  Report Type: 
  Country: None (occurrence: None)
  Receive Date: 20080915
  Receipt Date: 20080904
  Transmission Date: 20090109
  Serious: Yes (Hospitalization)
  Sender: FDA-Public Use
  Company Number: US-BAYER-200715050NA

PATIENT
  Sex: Female

DRUGS (4)
  1. AVELOX [Suspect]
     Indication: BRONCHITIS
     Dosage: TOTAL DAILY DOSE: 400 MG  UNIT DOSE: 400 MG
     Route: 048
     Dates: start: 20070125, end: 20070125
  2. LEVOTHYROXINE SODIUM [Concomitant]
  3. ASPIRIN [Concomitant]
  4. ZETIA [Concomitant]

REACTIONS (9)
  - ANAPHYLACTIC REACTION [None]
  - ANXIETY [None]
  - APPARENT DEATH [None]
  - BLOOD PRESSURE SYSTOLIC DECREASED [None]
  - LIP SWELLING [None]
  - LOSS OF CONSCIOUSNESS [None]
  - PAIN IN EXTREMITY [None]
  - PARAESTHESIA [None]
  - URINARY INCONTINENCE [None]
